FAERS Safety Report 10254589 (Version 3)
Quarter: 2014Q3

REPORT INFORMATION
  Report Type: Report from Study
  Country: CA (occurrence: CA)
  Receive Date: 20140624
  Receipt Date: 20140718
  Transmission Date: 20150326
  Serious: Yes (Other)
  Sender: FDA-Public Use
  Company Number: PHHY2014CA074408

PATIENT
  Sex: Female

DRUGS (6)
  1. LANSOPRAZOLE. [Concomitant]
     Active Substance: LANSOPRAZOLE
     Dosage: 30 MG, QD
  2. CLOZARIL [Suspect]
     Active Substance: CLOZAPINE
     Indication: PSYCHOTIC DISORDER
     Dosage: 12.5 TO 25 MG, DAILY
     Route: 048
     Dates: start: 20140328, end: 20140409
  3. CALCIUM CARBONATE. [Concomitant]
     Active Substance: CALCIUM CARBONATE
     Dosage: 1250 MG, QD
  4. THIAMIN [Concomitant]
     Active Substance: THIAMINE
     Dosage: 100 MG, QD
  5. COLECALCIFEROL [Concomitant]
     Active Substance: CHOLECALCIFEROL
     Dosage: 1200 IU, QD
  6. FLUOXETINE [Concomitant]
     Active Substance: FLUOXETINE\FLUOXETINE HYDROCHLORIDE
     Dosage: 60 MG, QD
     Route: 048

REACTIONS (4)
  - Transaminases increased [Recovered/Resolved]
  - Abdominal pain [Unknown]
  - Mental status changes [Unknown]
  - Somnolence [Unknown]
